FAERS Safety Report 5532415-2 (Version None)
Quarter: 2007Q4

REPORT INFORMATION
  Report Type: 
  Country: None (occurrence: None)
  Receive Date: 20071203
  Receipt Date: 20071121
  Transmission Date: 20080405
  Serious: Yes (Death, Hospitalization)
  Sender: FDA-Public Use
  Company Number: JP-AMGEN-US239090

PATIENT
  Sex: Male

DRUGS (16)
  1. ENBREL [Suspect]
     Indication: RHEUMATOID ARTHRITIS
     Route: 058
     Dates: start: 20061215, end: 20061228
  2. ENBREL [Suspect]
     Route: 058
     Dates: start: 20070125, end: 20070302
  3. ENBREL [Suspect]
     Route: 058
     Dates: start: 20070302, end: 20070606
  4. MEDROL [Suspect]
     Indication: RHEUMATOID ARTHRITIS
     Route: 048
  5. CLINORIL [Suspect]
     Indication: RHEUMATOID ARTHRITIS
     Route: 048
  6. ISCOTIN [Suspect]
     Indication: ANTIBIOTIC PROPHYLAXIS
     Route: 048
     Dates: start: 20061027
  7. BREDININ [Suspect]
     Indication: RHEUMATOID ARTHRITIS
     Route: 048
  8. BIOFERMIN [Concomitant]
     Dosage: 3 DF/DAY
     Route: 048
     Dates: start: 20061129, end: 20070406
  9. BIOFERMIN [Concomitant]
     Dosage: 3 DF/DAY
     Route: 048
     Dates: start: 20070613
  10. COMELIAN [Concomitant]
     Indication: ANGINA PECTORIS
     Dosage: 3 DF/DAY
     Route: 048
  11. ASPIRIN [Concomitant]
     Indication: ANGINA PECTORIS
     Dosage: 2 DF/DAY
     Route: 048
  12. PANALDINE [Concomitant]
     Indication: ANGINA PECTORIS
     Dosage: 2 DF/DAY
     Route: 048
  13. GASTER [Concomitant]
     Dosage: 1 DF/DAY
     Route: 048
  14. URINORM [Concomitant]
     Dosage: 1 DF/DAY
     Route: 048
  15. LIPITOR [Concomitant]
     Indication: HYPERLIPIDAEMIA
     Dosage: 1 DF/DAY
     Route: 048
  16. ALOSENN [Concomitant]
     Route: 048
     Dates: start: 20070406, end: 20070507

REACTIONS (14)
  - AMYLOIDOSIS [None]
  - ANAEMIA [None]
  - ANOREXIA [None]
  - BLOOD CREATININE INCREASED [None]
  - BLOOD UREA INCREASED [None]
  - CONDITION AGGRAVATED [None]
  - DEATH [None]
  - DISEASE PROGRESSION [None]
  - HERPES ZOSTER [None]
  - INFECTION [None]
  - LOSS OF CONSCIOUSNESS [None]
  - MALAISE [None]
  - RENAL DISORDER [None]
  - URINARY INCONTINENCE [None]
